FAERS Safety Report 6155620-3 (Version None)
Quarter: 2009Q2

REPORT INFORMATION
  Report Type: 
  Country: None (occurrence: None)
  Receive Date: 20090413
  Receipt Date: 20090413
  Transmission Date: 20091009
  Serious: Yes (Other)
  Sender: FDA-Public Use
  Company Number: None

PATIENT
  Age: 57 Year
  Sex: Female
  Weight: 65 kg

DRUGS (1)
  1. AREDIA [Suspect]
     Indication: OSTEOPOROSIS PROPHYLAXIS
     Dosage: 90 MG ONCE IV
     Route: 042
     Dates: start: 20081115, end: 20081115

REACTIONS (2)
  - ARTHRITIS [None]
  - OSTEONECROSIS [None]
